FAERS Safety Report 5947910-1 (Version None)
Quarter: 2008Q4

REPORT INFORMATION
  Report Type: 
  Country: None (occurrence: None)
  Receive Date: 20081111
  Receipt Date: 20080903
  Transmission Date: 20090506
  Serious: Yes (Life-Threatening, Hospitalization, Other)
  Sender: FDA-Public Use
  Company Number: A0743089A

PATIENT
  Age: 53 Year
  Sex: Female
  Weight: 75.5 kg

DRUGS (4)
  1. TREXIMET [Suspect]
     Indication: MIGRAINE
     Dosage: 1TAB SINGLE DOSE
     Route: 048
  2. UNKNOWN [Concomitant]
  3. VITAMIN B-12 [Concomitant]
  4. UNKNOWN MEDICATION [Concomitant]

REACTIONS (3)
  - ARTERIOSPASM CORONARY [None]
  - CHEST PAIN [None]
  - MYOCARDIAL INFARCTION [None]
